FAERS Safety Report 11428320 (Version 1)
Quarter: 2015Q3

REPORT INFORMATION
  Report Type: Spontaneous
  Country: US (occurrence: US)
  Receive Date: 20150828
  Receipt Date: 20150828
  Transmission Date: 20151125
  Serious: No
  Sender: FDA-Public Use
  Company Number: US-ROCHE-1270235

PATIENT
  Age: 29 Year
  Sex: Female

DRUGS (3)
  1. TELAPREVIR [Suspect]
     Active Substance: TELAPREVIR
     Indication: HEPATITIS C
     Route: 065
     Dates: start: 20130826
  2. PEGASYS [Suspect]
     Active Substance: PEGINTERFERON ALFA-2A
     Indication: HEPATITIS C
     Route: 065
     Dates: start: 20130826
  3. RIBAVIRIN. [Suspect]
     Active Substance: RIBAVIRIN
     Indication: HEPATITIS C
     Dosage: DOSE: 2 PILLS THREE TIMES A DAY
     Route: 065
     Dates: start: 20130826

REACTIONS (6)
  - Tremor [Unknown]
  - Somnolence [Unknown]
  - Injection site extravasation [Unknown]
  - Oropharyngeal pain [Unknown]
  - Drug administration error [Unknown]
  - Fatigue [Unknown]

NARRATIVE: CASE EVENT DATE: 20130826
